FAERS Safety Report 7035826-1 (Version None)
Quarter: 2010Q4

REPORT INFORMATION
  Report Type: 
  Country: None (occurrence: None)
  Receive Date: 20101007
  Receipt Date: 20101007
  Transmission Date: 20110411
  Serious: Yes (Life-Threatening, Hospitalization, Other)
  Sender: FDA-Public Use
  Company Number: None

PATIENT
  Age: 32 Year
  Sex: Female
  Weight: 56.6996 kg

DRUGS (1)
  1. YAZ [Suspect]
     Indication: MENSTRUAL CYCLE MANAGEMENT
     Dosage: 28 DAY 3-0.02MG TABS 1 A DAY PO
     Route: 048
     Dates: start: 20090301, end: 20100119

REACTIONS (3)
  - DEEP VEIN THROMBOSIS [None]
  - LUNG DISORDER [None]
  - PULMONARY EMBOLISM [None]
